FAERS Safety Report 15248260 (Version 1)
Quarter: 2018Q3

REPORT INFORMATION
  Report Type: Spontaneous
  Country: IE (occurrence: IE)
  Receive Date: 20180807
  Receipt Date: 20180807
  Transmission Date: 20181010
  Serious: Yes (Other)
  Sender: FDA-Public Use
  Company Number: IE-INGENUS PHARMACEUTICALS NJ, LLC-ING201807-000782

PATIENT
  Age: 57 Year
  Sex: Female

DRUGS (2)
  1. IBUPROFEN. [Suspect]
     Active Substance: IBUPROFEN
     Indication: PAIN
  2. CARISOPRODOL, ASPIRIN AND CODEINE PHOSPHATE [Suspect]
     Active Substance: ASPIRIN\CARISOPRODOL\CODEINE PHOSPHATE
     Indication: PAIN

REACTIONS (8)
  - Drug dependence [Recovering/Resolving]
  - Euphoric mood [Recovering/Resolving]
  - Child neglect [Recovered/Resolved]
  - Haematemesis [Unknown]
  - Impaired work ability [Recovering/Resolving]
  - Neglect of personal appearance [Recovering/Resolving]
  - Dissociation [Recovering/Resolving]
  - Intentional product misuse [Unknown]
